FAERS Safety Report 7009593-1 (Version None)
Quarter: 2010Q3

REPORT INFORMATION
  Report Type: 
  Country: None (occurrence: None)
  Receive Date: 20100903
  Receipt Date: 20100330
  Transmission Date: 20110219
  Serious: Yes (Other)
  Sender: FDA-Public Use
  Company Number: 2010041182

PATIENT
  Age: 77 Year
  Sex: Female

DRUGS (13)
  1. DETROL LA [Suspect]
     Indication: URINARY INCONTINENCE
  2. METFORMIN HCL [Concomitant]
  3. DILTIAZEM [Concomitant]
  4. ASPIRIN [Concomitant]
  5. VITAMIN A [Concomitant]
  6. VITAMIN D [Concomitant]
  7. VITAMIN E [Concomitant]
  8. GARLIC (GARLIC) [Concomitant]
  9. FISH OIL (FISH OIL) [Concomitant]
  10. CINNAMON (CINNAMON) [Concomitant]
  11. POMEGRANATE (POMEGRANATE) [Concomitant]
  12. BETACAROTENE (BETACAROTENE) [Concomitant]
  13. VACCINIUM MACROCARPON (VACCINIUM MACROCARPON) [Concomitant]

REACTIONS (1)
  - DRY MOUTH [None]
